FAERS Safety Report 20979547 (Version 1)
Quarter: 2022Q2

REPORT INFORMATION
  Report Type: Report from Study
  Country: US (occurrence: US)
  Receive Date: 20220620
  Receipt Date: 20220620
  Transmission Date: 20220721
  Serious: Yes (Other)
  Sender: FDA-Public Use
  Company Number: US-SA-SAC20220615000075

PATIENT
  Age: 72 Year
  Sex: Female

DRUGS (1)
  1. DUPILUMAB [Suspect]
     Active Substance: DUPILUMAB
     Indication: Asthma
     Dosage: UNK UNK, QOW
     Route: 058
     Dates: start: 20220517

REACTIONS (9)
  - Neuropathy peripheral [Unknown]
  - Headache [Unknown]
  - Pain [Unknown]
  - Nausea [Unknown]
  - Discomfort [Unknown]
  - Fatigue [Unknown]
  - Dizziness [Unknown]
  - Malaise [Unknown]
  - Dyspnoea [Unknown]

NARRATIVE: CASE EVENT DATE: 20220101
